FAERS Safety Report 5317766-9 (Version None)
Quarter: 2007Q2

REPORT INFORMATION
  Report Type: 
  Country: None (occurrence: None)
  Receive Date: 20070507
  Receipt Date: 20070430
  Transmission Date: 20071010
  Serious: Yes (Other)
  Sender: FDA-Public Use
  Company Number: DE-GENENTECH-240801

PATIENT
  Sex: Male

DRUGS (4)
  1. LUCENTIS [Suspect]
     Indication: MACULAR DEGENERATION
     Dosage: 1 DF, UNK
     Route: 031
     Dates: start: 20070313
  2. AVASTIN [Suspect]
     Indication: MACULAR DEGENERATION
  3. MEDICATION (UNK INGREDIENT) [Concomitant]
     Indication: MACULAR DEGENERATION
  4. TRIAMCINOLONE [Concomitant]
     Indication: MACULAR DEGENERATION

REACTIONS (2)
  - PHOTOPHOBIA [None]
  - VISUAL ACUITY REDUCED [None]
